FAERS Safety Report 13911601 (Version 2)
Quarter: 2017Q4

REPORT INFORMATION
  Report Type: Spontaneous
  Country: JP (occurrence: JP)
  Receive Date: 20170828
  Receipt Date: 20171010
  Transmission Date: 20180320
  Serious: Yes (Death, Hospitalization)
  Sender: FDA-Public Use
  Company Number: JP-ELI_LILLY_AND_COMPANY-JP201708010007

PATIENT
  Age: 81 Year
  Sex: Male
  Weight: 48 kg

DRUGS (3)
  1. CYRAMZA [Suspect]
     Active Substance: RAMUCIRUMAB
     Indication: ADENOCARCINOMA GASTRIC
     Dosage: 400 MG, OTHER
     Route: 041
     Dates: start: 20170622, end: 20170718
  2. TAKECAB [Concomitant]
     Active Substance: VONOPRAZAN FUMURATE
     Dosage: 20 MG, DAILY
     Dates: start: 201704, end: 201707
  3. PACLITAXEL. [Concomitant]
     Active Substance: PACLITAXEL
     Indication: ADENOCARCINOMA GASTRIC
     Dosage: 120 MG, OTHER
     Dates: start: 20170622, end: 20170718

REACTIONS (2)
  - Gastrointestinal perforation [Fatal]
  - Infectious pleural effusion [Fatal]

NARRATIVE: CASE EVENT DATE: 20170727
